FAERS Safety Report 10191460 (Version 1)
Quarter: 2014Q2

REPORT INFORMATION
  Report Type: Spontaneous
  Country: US (occurrence: US)
  Receive Date: 20140523
  Receipt Date: 20140523
  Transmission Date: 20141212
  Serious: Yes (Hospitalization)
  Sender: FDA-Public Use
  Company Number: US-ELI_LILLY_AND_COMPANY-US201405004861

PATIENT
  Age: 55 Year
  Sex: Male

DRUGS (2)
  1. HUMALOG LISPRO [Suspect]
     Indication: TYPE 1 DIABETES MELLITUS
     Dosage: UNK, PRN
     Route: 058
     Dates: start: 2002
  2. MULTIVITAMIN                       /00097801/ [Concomitant]

REACTIONS (4)
  - Chest pain [Unknown]
  - Blood glucose increased [Unknown]
  - Malabsorption from injection site [Unknown]
  - Incorrect product storage [Unknown]
